FAERS Safety Report 9983849 (Version 1)
Quarter: 2014Q1

REPORT INFORMATION
  Report Type: Spontaneous
  Country: US (occurrence: US)
  Receive Date: 20140307
  Receipt Date: 20140307
  Transmission Date: 20141002
  Serious: Yes (Death, Hospitalization, Other)
  Sender: FDA-Public Use
  Company Number: US-BAXTER-2014BAX010485

PATIENT
  Sex: Female

DRUGS (2)
  1. DIANEAL PD2 [Suspect]
     Indication: PERITONEAL DIALYSIS
     Route: 033
     Dates: start: 2012, end: 20140224
  2. DIANEAL PD2 [Suspect]
     Indication: RENAL FAILURE CHRONIC

REACTIONS (3)
  - Myocardial infarction [Fatal]
  - Respiratory arrest [Unknown]
  - Coma [Unknown]
